FAERS Safety Report 15202681 (Version 4)
Quarter: 2018Q4

REPORT INFORMATION
  Report Type: Spontaneous
  Country: IT (occurrence: IT)
  Receive Date: 20180726
  Receipt Date: 20181102
  Transmission Date: 20190204
  Serious: Yes (Other)
  Sender: FDA-Public Use
  Company Number: IT-TEVA-2018-IT-930091

PATIENT
  Age: 71 Year
  Sex: Female

DRUGS (3)
  1. LEVOFLOXACIN. [Suspect]
     Active Substance: LEVOFLOXACIN
     Indication: RESPIRATORY TRACT INFECTION
     Route: 048
     Dates: start: 20180209, end: 20180209
  2. CONGESCOR [Concomitant]
     Active Substance: BISOPROLOL
     Route: 048
  3. TRIATEC [RAMIPRIL] [Concomitant]
     Route: 048

REACTIONS (3)
  - Hypersensitivity [Recovering/Resolving]
  - Skin reaction [Recovering/Resolving]
  - Dry mouth [Recovering/Resolving]

NARRATIVE: CASE EVENT DATE: 20180209
